FAERS Safety Report 5089560-8 (Version None)
Quarter: 2006Q3

REPORT INFORMATION
  Report Type: 
  Country: None (occurrence: None)
  Receive Date: 20060822
  Receipt Date: 20060804
  Transmission Date: 20061208
  Serious: Yes (Other)
  Sender: FDA-Public Use
  Company Number: US200607002482

PATIENT
  Age: 57 Year
  Sex: Male
  Weight: 71.2 kg

DRUGS (1)
  1. CIALIS [Suspect]
     Indication: ERECTILE DYSFUNCTION
     Dosage: 20 MG, MONTHLY (1/M)
     Dates: start: 20041201, end: 20060605

REACTIONS (3)
  - CLUSTER HEADACHE [None]
  - HYPERTENSION [None]
  - RETINAL VEIN OCCLUSION [None]
